FAERS Safety Report 16196673 (Version 2)
Quarter: 2019Q2

REPORT INFORMATION
  Report Type: Report from Study
  Country: US (occurrence: US)
  Receive Date: 20190415
  Receipt Date: 20190419
  Transmission Date: 20190711
  Serious: Yes (Death)
  Sender: FDA-Public Use
  Company Number: US-BAUSCH-BL-2019-011134

PATIENT
  Sex: Male

DRUGS (1)
  1. XENAZINE [Suspect]
     Active Substance: TETRABENAZINE
     Indication: HUNTINGTON^S DISEASE
     Dosage: 1 TABLET IN THE MORNING, 1 TABLET AT NOON, 2 TABLETS AT NIGHT
     Route: 048

REACTIONS (2)
  - Condition aggravated [Fatal]
  - Huntington^s disease [Fatal]
